FAERS Safety Report 10079849 (Version 1)
Quarter: 2014Q2

REPORT INFORMATION
  Report Type: Spontaneous
  Country: US (occurrence: US)
  Receive Date: 20140415
  Receipt Date: 20140415
  Transmission Date: 20141212
  Serious: Yes (Other)
  Sender: FDA-Public Use
  Company Number: US-DENDREON CORPORATION-2014PROUSA03640

PATIENT
  Sex: Male

DRUGS (3)
  1. PROVENGE [Suspect]
     Indication: PROSTATE CANCER METASTATIC
     Dosage: 250 ML, SINGLE
     Route: 042
  2. PROVENGE [Suspect]
     Dosage: 250 ML, SINGLE
     Route: 042
  3. PROVENGE [Suspect]
     Dosage: 250 ML, SINGLE
     Route: 042

REACTIONS (1)
  - Prostate cancer recurrent [Unknown]
